FAERS Safety Report 4436066-2 (Version None)
Quarter: 2004Q3

REPORT INFORMATION
  Report Type: 
  Country: None (occurrence: None)
  Receive Date: 20040726
  Receipt Date: 20040428
  Transmission Date: 20050211
  Serious: No
  Sender: FDA-Public Use
  Company Number: USA040466180

PATIENT
  Age: 65 Year
  Sex: Female
  Weight: 40 kg

DRUGS (5)
  1. FORTEO [Suspect]
     Indication: OSTEOPOROSIS
     Dosage: 20 UG/1 DAY
  2. VIOXX [Concomitant]
  3. CALCIUM WITH VITAMIN D [Concomitant]
  4. CENTRUM [Concomitant]
  5. SKELAXIN [Concomitant]

REACTIONS (1)
  - TREMOR [None]
